FAERS Safety Report 15584213 (Version 1)
Quarter: 2018Q4

REPORT INFORMATION
  Report Type: Spontaneous
  Country: US (occurrence: US)
  Receive Date: 20181105
  Receipt Date: 20181105
  Transmission Date: 20190205
  Serious: No
  Sender: FDA-Public Use
  Company Number: US-TEVA-2018-US-970033

PATIENT
  Sex: Female

DRUGS (2)
  1. ALPRATAB-A [Suspect]
     Active Substance: ALPRAZOLAM
     Indication: ANXIETY
     Dosage: FORM STRENGTH: 0.25, UNIT NOT PROVIDED
     Route: 065
  2. ALPRATAB-A [Suspect]
     Active Substance: ALPRAZOLAM
     Dosage: FORM STRENGTH: 0.25, UNIT NOT PROVIDED
     Route: 065

REACTIONS (1)
  - Drug ineffective [Unknown]

NARRATIVE: CASE EVENT DATE: 20181025
